FAERS Safety Report 4525260-8 (Version None)
Quarter: 2004Q4

REPORT INFORMATION
  Report Type: 
  Country: None (occurrence: None)
  Receive Date: 20041116
  Receipt Date: 20040819
  Transmission Date: 20050328
  Serious: No
  Sender: FDA-Public Use
  Company Number: S04-USA-05542-01

PATIENT
  Age: 78 Year
  Sex: Female

DRUGS (8)
  1. NAMENDA [Suspect]
     Indication: SENILE DEMENTIA
     Dosage: SEE IMAGE
     Route: 048
     Dates: start: 20040504, end: 20040510
  2. NAMENDA [Suspect]
     Indication: SENILE DEMENTIA
     Dosage: SEE IMAGE
     Route: 048
     Dates: start: 20040511, end: 20040517
  3. NAMENDA [Suspect]
     Indication: SENILE DEMENTIA
     Dosage: SEE IMAGE
     Route: 048
     Dates: start: 20040518, end: 20040524
  4. NAMENDA [Suspect]
     Indication: SENILE DEMENTIA
     Dosage: SEE IMAGE
     Route: 048
     Dates: start: 20040525
  5. SYNTHROID [Concomitant]
  6. METHOTREXATE [Concomitant]
  7. RANITIDINE [Concomitant]
  8. CENTRUM [Concomitant]

REACTIONS (6)
  - AMNESIA [None]
  - BREAST TENDERNESS [None]
  - DRUG INEFFECTIVE [None]
  - HYPERTROPHY BREAST [None]
  - OEDEMA PERIPHERAL [None]
  - PAIN IN EXTREMITY [None]
